FAERS Safety Report 6385580-1 (Version None)
Quarter: 2009Q3

REPORT INFORMATION
  Report Type: 
  Country: None (occurrence: None)
  Receive Date: 20090929
  Receipt Date: 20090303
  Transmission Date: 20100115
  Serious: Yes (Other)
  Sender: FDA-Public Use
  Company Number: LMI-2009-00031

PATIENT
  Age: 50 Year
  Sex: Male
  Weight: 127.0072 kg

DRUGS (13)
  1. DEFINITY [Suspect]
     Indication: CARDIAC STRESS TEST
     Dosage: DILUTED BOLUS (2.5 ML), INTRAVENOUS, DILUTED BOLUS (2.5 ML), INTRAVENOUS
     Route: 042
     Dates: start: 20090303, end: 20090303
  2. DEFINITY [Suspect]
     Indication: CHEST PAIN
     Dosage: DILUTED BOLUS (2.5 ML), INTRAVENOUS, DILUTED BOLUS (2.5 ML), INTRAVENOUS
     Route: 042
     Dates: start: 20090303, end: 20090303
  3. DEFINITY [Suspect]
     Indication: ECHOCARDIOGRAM
     Dosage: DILUTED BOLUS (2.5 ML), INTRAVENOUS, DILUTED BOLUS (2.5 ML), INTRAVENOUS
     Route: 042
     Dates: start: 20090303, end: 20090303
  4. DEFINITY [Suspect]
     Indication: CARDIAC STRESS TEST
     Dosage: DILUTED BOLUS (2.5 ML), INTRAVENOUS, DILUTED BOLUS (2.5 ML), INTRAVENOUS
     Route: 042
     Dates: start: 20090303, end: 20090303
  5. DEFINITY [Suspect]
     Indication: CHEST PAIN
     Dosage: DILUTED BOLUS (2.5 ML), INTRAVENOUS, DILUTED BOLUS (2.5 ML), INTRAVENOUS
     Route: 042
     Dates: start: 20090303, end: 20090303
  6. DEFINITY [Suspect]
     Indication: ECHOCARDIOGRAM
     Dosage: DILUTED BOLUS (2.5 ML), INTRAVENOUS, DILUTED BOLUS (2.5 ML), INTRAVENOUS
     Route: 042
     Dates: start: 20090303, end: 20090303
  7. LOPRESSOR [Concomitant]
  8. SIMVASTATIN [Concomitant]
  9. PROZACAM [Concomitant]
  10. CLARITIN [Concomitant]
  11. ASPIRIN [Concomitant]
  12. MULTIVITAMIN (ERGOCALCIFEROL, ASCORBIC ACID, PYRIDOXINE HYDROCHLORIDE, [Concomitant]
  13. GLUCOSAMINE (GLUCOSAMINE) [Concomitant]

REACTIONS (6)
  - DYSPNOEA [None]
  - HEART RATE INCREASED [None]
  - HYPERSENSITIVITY [None]
  - PRURITUS [None]
  - URTICARIA [None]
  - WHEEZING [None]
